FAERS Safety Report 12298705 (Version 1)
Quarter: 2016Q2

REPORT INFORMATION
  Report Type: Report from Study
  Country: BE (occurrence: BE)
  Receive Date: 20160425
  Receipt Date: 20160425
  Transmission Date: 20160815
  Serious: Yes (Other)
  Sender: FDA-Public Use
  Company Number: BE-ROCHE-1744092

PATIENT
  Age: 69 Year
  Sex: Female
  Weight: 96 kg

DRUGS (5)
  1. CARBOPLATIN. [Suspect]
     Active Substance: CARBOPLATIN
     Indication: OVARIAN CANCER
     Dosage: 3 WEEKLY TO 6 CYCLES
     Route: 065
     Dates: start: 201404
  2. PACLITAXEL. [Suspect]
     Active Substance: PACLITAXEL
     Dosage: DURING 4 CYCLES
     Route: 065
     Dates: start: 201507
  3. AVASTIN [Suspect]
     Active Substance: BEVACIZUMAB
     Indication: OVARIAN CANCER
     Route: 065
     Dates: start: 201507
  4. CARBOPLATIN. [Suspect]
     Active Substance: CARBOPLATIN
     Dosage: DURING 4 CYCLES
     Route: 065
     Dates: start: 201507
  5. PACLITAXEL. [Suspect]
     Active Substance: PACLITAXEL
     Indication: OVARIAN CANCER
     Dosage: 3 WEEKLY - 6 CYCLES
     Route: 065
     Dates: start: 201404

REACTIONS (1)
  - Acute abdomen [Unknown]
